FAERS Safety Report 5193811-9 (Version None)
Quarter: 2006Q4

REPORT INFORMATION
  Report Type: 
  Country: None (occurrence: None)
  Receive Date: 20061228
  Receipt Date: 20061116
  Transmission Date: 20070319
  Serious: Yes (Death, Other)
  Sender: FDA-Public Use
  Company Number: GB-AVENTIS-200615811EU

PATIENT
  Age: 81 Year
  Sex: Female

DRUGS (6)
  1. CLEXANE [Suspect]
     Indication: DRUG USE FOR UNKNOWN INDICATION
     Route: 058
     Dates: start: 20060829, end: 20060911
  2. FRUSEMIDE [Concomitant]
     Dates: start: 20060829
  3. ASPIRIN [Concomitant]
     Dates: start: 20060829
  4. ATENOLOL [Concomitant]
     Dates: start: 20060829
  5. ATORVASTATIN CALCIUM [Concomitant]
     Dates: start: 20060829
  6. RAMIPRIL [Concomitant]
     Dates: start: 20060829

REACTIONS (3)
  - DEATH [None]
  - HEPARIN-INDUCED THROMBOCYTOPENIA [None]
  - PERIPHERAL ISCHAEMIA [None]
